FAERS Safety Report 8511007-7 (Version None)
Quarter: 2012Q3

REPORT INFORMATION
  Report Type: 
  Country: None (occurrence: None)
  Receive Date: 20120716
  Receipt Date: 20120709
  Transmission Date: 20120928
  Serious: Yes (Hospitalization, Other)
  Sender: FDA-Public Use
  Company Number: US-BAYER-2012-014511

PATIENT
  Age: 29 Year
  Sex: Female
  Weight: 122 kg

DRUGS (15)
  1. ALLEGRA-D 12 HOUR [Concomitant]
     Indication: MULTIPLE ALLERGIES
     Dosage: UNK UNK, QD
     Dates: start: 20030101
  2. ANTIMIGRAINE PREPARATIONS [Concomitant]
     Indication: MIGRAINE
     Dosage: UNK
     Dates: start: 20030101
  3. MIDRIN [Concomitant]
     Indication: HEADACHE
     Dosage: 1 TAB, PRN
  4. PRILOSEC [Concomitant]
     Indication: GASTROOESOPHAGEAL REFLUX DISEASE
     Dosage: 20 MG, UNK
     Dates: start: 20040101
  5. DROSPIRENONE AND ETHINYL ESTRADIOL [Suspect]
     Indication: ACNE
     Dosage: UNK
     Dates: start: 20090517, end: 20110119
  6. ANTIBIOTICS [Concomitant]
     Dosage: PRN
  7. IBUPROFEN [Concomitant]
     Indication: BACK PAIN
     Dosage: UNK UNK, PRN
     Dates: start: 20080101
  8. ECHINACEA [Concomitant]
     Dosage: UNK UNK, PRN
  9. BISMUTH SUBSALICYLATE [Concomitant]
  10. CLONAZEPAM [Concomitant]
     Indication: ANXIETY
     Dosage: 1 MG, BID
     Dates: start: 20090101
  11. B-COMPLEX [VITAMIN B NOS] [Concomitant]
  12. YASMIN [Suspect]
     Indication: ACNE
     Dosage: UNK
     Dates: start: 20061005, end: 20090319
  13. WELLBUTRIN [Concomitant]
     Indication: DEPRESSION
     Dosage: 150 MG, BID
     Dates: start: 20090101
  14. SKELAXIN [Concomitant]
     Indication: BACK INJURY
     Dosage: UNK
     Dates: start: 20081201
  15. MULTI-VITAMINS [Concomitant]
     Dosage: UNK UNK, QD

REACTIONS (6)
  - NAUSEA [None]
  - CHOLELITHIASIS [None]
  - BILIARY COLIC [None]
  - VOMITING [None]
  - CHOLECYSTITIS CHRONIC [None]
  - ABDOMINAL PAIN UPPER [None]
